FAERS Safety Report 25820745 (Version 1)
Quarter: 2025Q3

REPORT INFORMATION
  Report Type: Spontaneous
  Country: EU (occurrence: EU)
  Receive Date: 20250919
  Receipt Date: 20250919
  Transmission Date: 20251020
  Serious: Yes (Other)
  Sender: AMGEN
  Company Number: None

PATIENT
  Age: 42 Year
  Sex: Male

DRUGS (1)
  1. ENBREL [Suspect]
     Active Substance: ETANERCEPT
     Indication: Spondylitis
     Route: 065
     Dates: start: 20050516

REACTIONS (5)
  - Hepatitis [Recovered/Resolved]
  - Respiratory tract infection [Recovered/Resolved]
  - Exfoliative rash [Recovered/Resolved]
  - Eczema [Recovered/Resolved]
  - Genitourinary tract infection [Recovered/Resolved]

NARRATIVE: CASE EVENT DATE: 20050901
